FAERS Safety Report 14009302 (Version 1)
Quarter: 2017Q3

REPORT INFORMATION
  Report Type: Spontaneous
  Country: DK (occurrence: DK)
  Receive Date: 20170925
  Receipt Date: 20170925
  Transmission Date: 20171128
  Serious: Yes (Other)
  Sender: FDA-Public Use
  Company Number: PHHY2017DK137851

PATIENT
  Age: 21 Year
  Sex: Female
  Weight: 61 kg

DRUGS (3)
  1. IBUMETIN [Concomitant]
     Active Substance: IBUPROFEN
     Indication: PAIN
     Route: 048
     Dates: start: 20170830
  2. HEXAMYCIN [Suspect]
     Active Substance: GENTAMICIN
     Indication: SEPSIS
     Dosage: 300 MG, UNK, 40 MG/ML
     Route: 042
     Dates: start: 20170830, end: 20170830
  3. PAMOL [Concomitant]
     Active Substance: ACETAMINOPHEN
     Indication: PAIN
     Route: 048
     Dates: start: 20170830

REACTIONS (9)
  - Rash [Recovered/Resolved]
  - Chest pain [Recovered/Resolved]
  - Erythema [Recovered/Resolved]
  - Blood pressure systolic decreased [Recovered/Resolved]
  - Burning sensation [Recovered/Resolved]
  - Malaise [Recovered/Resolved]
  - Anaphylactic reaction [Recovered/Resolved]
  - Tinnitus [Recovered/Resolved]
  - Dizziness [Recovered/Resolved]

NARRATIVE: CASE EVENT DATE: 20170830
